FAERS Safety Report 8606889 (Version 3)
Quarter: 2014Q1

REPORT INFORMATION
  Report Type: Spontaneous
  Country: US (occurrence: US)
  Receive Date: 20120611
  Receipt Date: 20140124
  Transmission Date: 20141002
  Serious: Yes (Hospitalization)
  Sender: FDA-Public Use
  Company Number: US-ASTRAZENECA-2012SE34943

PATIENT
  Age: 627 Month
  Sex: Female
  Weight: 77.6 kg

DRUGS (23)
  1. NEXIUM [Suspect]
     Indication: GASTROOESOPHAGEAL REFLUX DISEASE
     Route: 048
     Dates: start: 2005, end: 2013
  2. NEXIUM [Suspect]
     Indication: GASTROOESOPHAGEAL REFLUX DISEASE
     Route: 048
     Dates: start: 200610
  3. NEXIUM [Suspect]
     Indication: GASTROOESOPHAGEAL REFLUX DISEASE
     Route: 048
     Dates: start: 20050401
  4. NEXIUM [Suspect]
     Indication: GASTROOESOPHAGEAL REFLUX DISEASE
     Route: 048
  5. PANTOZOLE [Concomitant]
     Indication: GASTROOESOPHAGEAL REFLUX DISEASE
     Dates: start: 2013
  6. RANITINDINE [Concomitant]
     Indication: GASTROOESOPHAGEAL REFLUX DISEASE
     Dates: start: 2013
  7. PEPTO-BISMOL [Concomitant]
     Dosage: 3 X YEAR 1/2 CAP
     Dates: start: 2009, end: 2011
  8. LORATADINE [Concomitant]
     Indication: HISTAMINE ABNORMAL
  9. FLUOXITINE [Concomitant]
     Indication: DEPRESSION
  10. GABAPENTINE [Concomitant]
     Indication: NEURALGIA
  11. BUPROPION [Concomitant]
     Indication: DEPRESSION
  12. PIROXICAM [Concomitant]
     Indication: ARTHRITIS
  13. CHOLESTYRAMINE [Concomitant]
     Indication: FAECES DISCOLOURED
  14. PEDIZON [Concomitant]
     Indication: COLITIS
  15. DIAPHEN [Concomitant]
     Indication: DIARRHOEA
  16. ATENOLOL [Concomitant]
     Indication: BLOOD PRESSURE
  17. ESTRADIOL [Concomitant]
     Indication: MENOPAUSE
     Dates: start: 2011, end: 2012
  18. ZOMIG [Concomitant]
     Indication: MIGRAINE
  19. HYPROCODON [Concomitant]
     Indication: PAIN
  20. FLUCONAZOLE [Concomitant]
     Dates: start: 20111223
  21. SINGULAIR [Concomitant]
     Dates: start: 20070321
  22. ALLEGRA [Concomitant]
     Dates: start: 20050601
  23. CRESTOR [Concomitant]
     Dates: start: 20050608

REACTIONS (12)
  - Asthma [Unknown]
  - Gallbladder disorder [Unknown]
  - Osteoporosis [Unknown]
  - Multiple fractures [Unknown]
  - Thoracic vertebral fracture [Unknown]
  - Bone density decreased [Unknown]
  - Nephrolithiasis [Unknown]
  - Gastrointestinal disorder [Unknown]
  - Arthritis [Unknown]
  - Bone disorder [Unknown]
  - Facet joint syndrome [Unknown]
  - Arthralgia [Unknown]
